FAERS Safety Report 17352161 (Version 1)
Quarter: 2020Q1

REPORT INFORMATION
  Report Type: Spontaneous
  Country: TR (occurrence: TR)
  Receive Date: 20200130
  Receipt Date: 20200130
  Transmission Date: 20200409
  Serious: Yes (Hospitalization)
  Sender: FDA-Public Use
  Company Number: TR-INCYTE CORPORATION-2020IN000904

PATIENT

DRUGS (3)
  1. JAKAVI [Suspect]
     Active Substance: RUXOLITINIB
     Indication: MYELOFIBROSIS
     Dosage: 20 MG, BID (2 X 20 MG)
     Route: 065
     Dates: start: 20170503
  2. COVERSYL PLUS [INDAPAMIDE;PERINDOPRIL ERBUMINE] [Concomitant]
     Active Substance: INDAPAMIDE\PERINDOPRIL
     Indication: HYPERTENSION
     Dosage: UNK
     Route: 065
  3. JAKAVI [Suspect]
     Active Substance: RUXOLITINIB
     Dosage: 15 MG, BID (2 X 15 MG AT 18TH MONTH OF PATIENT^S CONTROL)
     Route: 065

REACTIONS (6)
  - Hyperhidrosis [Unknown]
  - Platelet count abnormal [Unknown]
  - Dyspnoea [Unknown]
  - Vertigo [Unknown]
  - Asthma [Unknown]
  - Chest pain [Unknown]
